FAERS Safety Report 9972617 (Version 1)
Quarter: 2014Q1

REPORT INFORMATION
  Report Type: Report from Study
  Country: US (occurrence: US)
  Receive Date: 20140306
  Receipt Date: 20140306
  Transmission Date: 20141002
  Serious: No
  Sender: FDA-Public Use
  Company Number: US-ABBVIE-13P-163-1154427-00

PATIENT
  Age: 59 Year
  Sex: Female

DRUGS (6)
  1. HUMIRA [Suspect]
     Indication: CROHN^S DISEASE
     Dates: start: 201301
  2. CHOLESTYRAMINE [Concomitant]
     Indication: CROHN^S DISEASE
  3. HYDROCORTISONE [Concomitant]
     Indication: CROHN^S DISEASE
  4. LOMOTIL [Concomitant]
     Indication: PRODUCT USED FOR UNKNOWN INDICATION
  5. OXYCODONE [Concomitant]
     Indication: NECK PAIN
  6. FLEXERIL [Concomitant]
     Indication: NECK PAIN

REACTIONS (2)
  - Cyst [Recovered/Resolved]
  - Breast cyst [Not Recovered/Not Resolved]
